FAERS Safety Report 6550220-5 (Version None)
Quarter: 2010Q1

REPORT INFORMATION
  Report Type: 
  Country: None (occurrence: None)
  Receive Date: 20100125
  Receipt Date: 20100113
  Transmission Date: 20100710
  Serious: Yes (Hospitalization, Other)
  Sender: FDA-Public Use
  Company Number: US-ELI_LILLY_AND_COMPANY-US200804005879

PATIENT
  Sex: Female

DRUGS (21)
  1. FORTEO [Suspect]
     Indication: OSTEOPOROSIS
     Dates: start: 20030801, end: 20050801
  2. FORTEO [Suspect]
     Dosage: 20 UG, DAILY (1/D)
     Dates: start: 20080615
  3. FORTEO [Suspect]
  4. HUMALOG [Suspect]
     Indication: DIABETES MELLITUS
     Dosage: 1 U, EVERY HOUR
     Dates: start: 20060101
  5. PLAVIX [Concomitant]
     Dosage: 75 MG, DAILY (1/D)
  6. HUMALOG [Concomitant]
  7. SYNTHROID [Concomitant]
     Dosage: 0.5 UNK, QOD
  8. SYNTHROID [Concomitant]
     Dosage: 0.75 UNK, QOD
  9. FUROSEMIDE [Concomitant]
     Dosage: 20 MG, DAILY (1/D)
  10. NEXIUM [Concomitant]
     Dosage: 40 MG, UNK
  11. POTASSIUM CHLORIDE [Concomitant]
     Dosage: 10 MG, DAILY (1/D)
  12. MAGNESIUM [Concomitant]
  13. BENAZEPRIL HYDROCHLORIDE [Concomitant]
     Dosage: 20 MG, UNK
  14. LOVAZA [Concomitant]
  15. IRON [Concomitant]
  16. BABY ASPIRIN [Concomitant]
  17. LIPITOR [Concomitant]
     Dosage: 20 MG, UNK
  18. VITAMINS NOS [Concomitant]
     Dosage: 50000 U, WEEKLY (1/W)
  19. DARVOCET /00220901/ [Concomitant]
     Dosage: UNK, AS NEEDED
  20. LYRICA [Concomitant]
  21. MICARDIS HCT [Concomitant]
     Dosage: 80/25 MG, UNK

REACTIONS (13)
  - ARTHROPATHY [None]
  - CATARACT [None]
  - CORONARY ARTERY OCCLUSION [None]
  - DYSPNOEA EXERTIONAL [None]
  - FATIGUE [None]
  - GAIT DISTURBANCE [None]
  - IMPAIRED HEALING [None]
  - MEMORY IMPAIRMENT [None]
  - OSTEOPENIA [None]
  - RETINAL DISORDER [None]
  - VITAMIN D DECREASED [None]
  - WALKING AID USER [None]
  - WOUND INFECTION [None]
